FAERS Safety Report 7495834-3 (Version None)
Quarter: 2011Q2

REPORT INFORMATION
  Report Type: 
  Country: None (occurrence: None)
  Receive Date: 20110523
  Receipt Date: 20110513
  Transmission Date: 20111010
  Serious: Yes (Disabling)
  Sender: FDA-Public Use
  Company Number: US-AMGEN-KDC427393

PATIENT
  Age: 95 Year
  Sex: Male
  Weight: 73 kg

DRUGS (5)
  1. DENOSUMAB [Suspect]
     Indication: PROSTATE CANCER
     Dosage: UNK UNK, UNK
     Route: 058
     Dates: start: 20060921, end: 20091116
  2. CALCIUM CARBONATE [Concomitant]
     Dosage: UNK UNK, QD
  3. CITALOPRAM HYDROBROMIDE [Concomitant]
  4. GLYBURIDE [Concomitant]
     Dosage: 5 MG, QD
  5. SULFAMETHOXAZOLE [Concomitant]

REACTIONS (6)
  - PAIN IN JAW [None]
  - TEMPOROMANDIBULAR JOINT SYNDROME [None]
  - OSTEOMYELITIS [None]
  - BONE DISORDER [None]
  - OSTEONECROSIS OF JAW [None]
  - EXPOSED BONE IN JAW [None]
